FAERS Safety Report 8304308-9 (Version None)
Quarter: 2012Q2

REPORT INFORMATION
  Report Type: 
  Country: None (occurrence: None)
  Receive Date: 20120423
  Receipt Date: 20120423
  Transmission Date: 20120825
  Serious: No
  Sender: FDA-Public Use
  Company Number: None

PATIENT
  Age: 50 Year
  Sex: Female
  Weight: 53.07 kg

DRUGS (2)
  1. CETIRIZINE [Concomitant]
  2. CETIRIZINE [Suspect]
     Indication: SEASONAL ALLERGY
     Dosage: 10MG
     Route: 048
     Dates: start: 20120410, end: 20120421

REACTIONS (8)
  - ARTHRALGIA [None]
  - MUSCULAR WEAKNESS [None]
  - SWELLING [None]
  - SWELLING FACE [None]
  - SINUS DISORDER [None]
  - OEDEMA PERIPHERAL [None]
  - MUSCULOSKELETAL STIFFNESS [None]
  - HEADACHE [None]
